FAERS Safety Report 18122278 (Version 1)
Quarter: 2020Q3

REPORT INFORMATION
  Report Type: Spontaneous
  Country: US (occurrence: US)
  Receive Date: 20200807
  Receipt Date: 20200807
  Transmission Date: 20201103
  Serious: No
  Sender: FDA-Public Use
  Company Number: US-CADILA HEALTHCARE LIMITED-US-ZYDUS-051569

PATIENT
  Age: 57 Year
  Sex: Female

DRUGS (1)
  1. VENLAFAXINE HYDROCHLORIDE 37.5 MILLIGRAM TABLET [Suspect]
     Active Substance: VENLAFAXINE HYDROCHLORIDE
     Indication: SCHIZOAFFECTIVE DISORDER DEPRESSIVE TYPE
     Dosage: 37.5 MILLIGRAM, BID
     Route: 048
     Dates: start: 20200511, end: 20200517

REACTIONS (4)
  - Product use in unapproved indication [Recovered/Resolved]
  - Drug ineffective for unapproved indication [Unknown]
  - Feeling abnormal [Unknown]
  - Formication [Unknown]

NARRATIVE: CASE EVENT DATE: 20200511
